FAERS Safety Report 19660214 (Version 1)
Quarter: 2021Q3

REPORT INFORMATION
  Report Type: Spontaneous
  Country: US (occurrence: US)
  Receive Date: 20210805
  Receipt Date: 20210805
  Transmission Date: 20211014
  Serious: Yes (Other)
  Sender: FDA-Public Use
  Company Number: US-HLS-202105066

PATIENT
  Sex: Male

DRUGS (1)
  1. CLOZARIL [Suspect]
     Active Substance: CLOZAPINE
     Indication: PRODUCT USED FOR UNKNOWN INDICATION
     Dosage: OVER 10 YEARS
     Route: 065

REACTIONS (3)
  - Haematocrit abnormal [Unknown]
  - Product dose omission issue [Unknown]
  - Withdrawal catatonia [Unknown]
